FAERS Safety Report 10157307 (Version 8)
Quarter: 2018Q4

REPORT INFORMATION
  Report Type: Spontaneous
  Country: US (occurrence: US)
  Receive Date: 20140507
  Receipt Date: 20181218
  Transmission Date: 20190204
  Serious: Yes (Life-Threatening, Hospitalization, Other)
  Sender: FDA-Public Use
  Company Number: US-DSJP-DSU-2014-00120

PATIENT

DRUGS (6)
  1. AZOR [Suspect]
     Active Substance: AMLODIPINE BESYLATE\OLMESARTAN MEDOXOMIL
     Indication: HYPERTENSION
     Dosage: 10/20 MG
     Route: 048
     Dates: start: 200801, end: 201005
  2. VIAGRA [Concomitant]
     Active Substance: SILDENAFIL CITRATE
     Indication: PRODUCT USED FOR UNKNOWN INDICATION
     Dosage: 100 MG, UNK
     Route: 048
  3. ZOLOFT [Concomitant]
     Active Substance: SERTRALINE HYDROCHLORIDE
     Indication: PRODUCT USED FOR UNKNOWN INDICATION
     Dosage: 50 MG, QD
     Route: 048
  4. AZOR [Suspect]
     Active Substance: AMLODIPINE BESYLATE\OLMESARTAN MEDOXOMIL
     Dosage: 10/40 MG, QD
     Dates: start: 201005, end: 20100730
  5. CENTRUM SILVER                     /01292501/ [Concomitant]
     Active Substance: MINERALS\VITAMINS
     Indication: PRODUCT USED FOR UNKNOWN INDICATION
     Dosage: UNK
  6. BENICAR [Suspect]
     Active Substance: OLMESARTAN MEDOXOMIL
     Indication: HYPERTENSION
     Dosage: 20 MG, SINGLE
     Dates: end: 20100624

REACTIONS (22)
  - Large intestinal ulcer [Recovering/Resolving]
  - Fall [Unknown]
  - Cytomegalovirus colitis [Recovering/Resolving]
  - Decubitus ulcer [Recovering/Resolving]
  - Insomnia [Recovering/Resolving]
  - Renal cyst [Unknown]
  - Septic embolus [Recovering/Resolving]
  - Chronic kidney disease [Recovering/Resolving]
  - Urinary tract infection [Recovered/Resolved]
  - Depression [Recovering/Resolving]
  - Gastric polyps [Recovered/Resolved]
  - Arthropathy [Unknown]
  - Gastrointestinal bacterial overgrowth [Unknown]
  - Gastrooesophageal reflux disease [Recovering/Resolving]
  - Diabetes mellitus [Unknown]
  - Sprue-like enteropathy [Recovering/Resolving]
  - Generalised oedema [Unknown]
  - Alopecia [Unknown]
  - Bacteraemia [Recovering/Resolving]
  - Iritis [Recovering/Resolving]
  - Acute kidney injury [Recovered/Resolved]
  - Hiatus hernia [Unknown]

NARRATIVE: CASE EVENT DATE: 2008
